FAERS Safety Report 9862816 (Version 1)
Quarter: 2014Q1

REPORT INFORMATION
  Report Type: Spontaneous
  Country: US (occurrence: US)
  Receive Date: 20140203
  Receipt Date: 20140203
  Transmission Date: 20141002
  Serious: Yes (Hospitalization, Other)
  Sender: FDA-Public Use
  Company Number: US-BAXTER-2014BAX004056

PATIENT
  Age: 73 Year
  Sex: Male

DRUGS (1)
  1. DIANEAL PD2 [Suspect]
     Indication: PERITONEAL DIALYSIS
     Route: 033

REACTIONS (5)
  - Sinusitis [Recovered/Resolved]
  - Vital functions abnormal [Recovered/Resolved]
  - Diabetes mellitus inadequate control [Recovered/Resolved]
  - Ligament sprain [Recovering/Resolving]
  - Fall [Recovering/Resolving]
